FAERS Safety Report 17283184 (Version 10)
Quarter: 2023Q2

REPORT INFORMATION
  Report Type: Spontaneous
  Country: US (occurrence: US)
  Receive Date: 20200117
  Receipt Date: 20230608
  Transmission Date: 20230722
  Serious: No
  Sender: FDA-Public Use
  Company Number: US-PFIZER INC-2018148522

PATIENT
  Age: 41 Year
  Sex: Female
  Weight: 82 kg

DRUGS (17)
  1. XELJANZ [Suspect]
     Active Substance: TOFACITINIB CITRATE
     Indication: Alopecia areata
     Dosage: 10 MG, UNK
     Route: 048
  2. XELJANZ [Suspect]
     Active Substance: TOFACITINIB CITRATE
     Indication: Alopecia
     Dosage: 5 MG, 2X/DAY
     Route: 048
  3. XELJANZ [Suspect]
     Active Substance: TOFACITINIB CITRATE
     Dosage: 15 MG, DAILY (TWO 5MG TABLET IN THE MORNING AND 1 AT NIGHT) (2 TABLETS IN THE MORNING AND 1 TABLET)
     Route: 048
     Dates: start: 2018
  4. XELJANZ [Suspect]
     Active Substance: TOFACITINIB CITRATE
     Dosage: 5 MG, 3X/DAY (15 MG DAILY)
     Route: 048
  5. XELJANZ [Suspect]
     Active Substance: TOFACITINIB CITRATE
     Dosage: 7.5 MG (1.5 TABLETS OF 5 MG), 2X/DAY
     Route: 048
     Dates: start: 2018
  6. XELJANZ [Suspect]
     Active Substance: TOFACITINIB CITRATE
     Dosage: 15 MG, DAILY (TWO 5MG TABLET IN THE MORNING AND 1 AT NIGHT)
     Route: 048
     Dates: start: 2018
  7. XELJANZ [Suspect]
     Active Substance: TOFACITINIB CITRATE
     Dosage: 7.5 MG, 2X/DAY
     Route: 048
     Dates: start: 2018
  8. XELJANZ [Suspect]
     Active Substance: TOFACITINIB CITRATE
     Dosage: 7.5 MG, 1X/DAY
     Route: 048
     Dates: start: 2018
  9. XELJANZ [Suspect]
     Active Substance: TOFACITINIB CITRATE
     Dosage: 15 MG, DAILY (TAKE 2 TABLET (10MG) IN MORNING, AND 1 TABLET 5MG IN THE EVENING)
     Route: 048
     Dates: start: 2018
  10. XELJANZ [Suspect]
     Active Substance: TOFACITINIB CITRATE
     Dosage: 1 MG, 1X/DAY (5 MG 2 TIMES PER DAY TO 1 MG ONCE A DAY)
  11. XELJANZ [Suspect]
     Active Substance: TOFACITINIB CITRATE
     Dosage: 5 MG, 2X/DAY (1 TABLET TWICE A DAY)
  12. BYSTOLIC [Concomitant]
     Active Substance: NEBIVOLOL HYDROCHLORIDE
     Indication: Hypertension
     Dosage: 10 MG, 1X/DAY
     Dates: start: 2016
  13. TRINTELLIX [Concomitant]
     Active Substance: VORTIOXETINE HYDROBROMIDE
     Indication: Depression
     Dosage: 20 MG, 1X/DAY
     Dates: start: 2016
  14. VALACYCLOVIR HYDROCHLORIDE [Concomitant]
     Active Substance: VALACYCLOVIR HYDROCHLORIDE
     Indication: Herpes virus infection
     Dosage: 500 MG, 1X/DAY
     Dates: start: 2016
  15. HYDROCHLOROTHIAZIDE [Concomitant]
     Active Substance: HYDROCHLOROTHIAZIDE
     Dosage: 25 MG, 1X/DAY
     Dates: start: 2017
  16. DIETARY SUPPLEMENT [Concomitant]
     Active Substance: DIETARY SUPPLEMENT
     Dosage: 600 MG, 2X/DAY
     Dates: start: 2019
  17. CHOLECALCIFEROL [Concomitant]
     Active Substance: CHOLECALCIFEROL
     Dosage: 2000 IU, 1X/DAY
     Dates: start: 2016

REACTIONS (3)
  - Feeling abnormal [Recovered/Resolved]
  - Off label use [Unknown]
  - Intentional product use issue [Unknown]
